FAERS Safety Report 22004138 (Version 1)
Quarter: 2023Q1

REPORT INFORMATION
  Report Type: Spontaneous
  Country: AU (occurrence: AU)
  Receive Date: 20230217
  Receipt Date: 20230217
  Transmission Date: 20230417
  Serious: Yes (Death, Hospitalization, Other)
  Sender: FDA-Public Use
  Company Number: AU-AMGEN-AUSSP2023026096

PATIENT
  Age: 71 Year
  Sex: Male

DRUGS (3)
  1. CARFILZOMIB [Suspect]
     Active Substance: CARFILZOMIB
     Indication: Plasma cell myeloma refractory
     Dosage: 125 MILLIGRAM
     Route: 065
     Dates: start: 20220707, end: 20220818
  2. DEXAMETHASONE [Suspect]
     Active Substance: DEXAMETHASONE
     Indication: Plasma cell myeloma refractory
     Dosage: 40 MILLIGRAM
     Route: 065
     Dates: start: 20220707, end: 20220803
  3. BELANTAMAB MAFODOTIN [Suspect]
     Active Substance: BELANTAMAB MAFODOTIN
     Indication: Plasma cell myeloma refractory
     Dosage: 184 MILLIGRAM
     Route: 065
     Dates: start: 20220707, end: 20220707

REACTIONS (4)
  - Atrial flutter [Recovering/Resolving]
  - Hypercalcaemia [Recovering/Resolving]
  - Acute kidney injury [Fatal]
  - Sepsis [Unknown]

NARRATIVE: CASE EVENT DATE: 20220715
